FAERS Safety Report 7618179-7 (Version None)
Quarter: 2011Q3

REPORT INFORMATION
  Report Type: 
  Country: None (occurrence: None)
  Receive Date: 20110718
  Receipt Date: 20100707
  Transmission Date: 20111222
  Serious: Yes (Hospitalization)
  Sender: FDA-Public Use
  Company Number: US-GLAXOSMITHKLINE-A0869860A

PATIENT
  Age: 70 Year
  Sex: Female
  Weight: 77.3 kg

DRUGS (9)
  1. LISINOPRIL [Concomitant]
  2. CLARINEX [Concomitant]
  3. GLUCOPHAGE [Concomitant]
  4. AVANDAMET [Suspect]
     Indication: DIABETES MELLITUS
     Route: 048
     Dates: start: 20041101, end: 20070301
  5. NORVASC [Concomitant]
  6. AVANDIA [Suspect]
     Indication: DIABETES MELLITUS
     Route: 048
  7. ALBUTEROL SULFATE AUTOHALER [Concomitant]
  8. ADVAIR DISKUS 100/50 [Concomitant]
  9. LIPITOR [Concomitant]

REACTIONS (3)
  - MYOCARDIAL INFARCTION [None]
  - CORONARY ARTERY DISEASE [None]
  - CARDIAC FAILURE CONGESTIVE [None]
